FAERS Safety Report 8775262 (Version 5)
Quarter: 2013Q2

REPORT INFORMATION
  Report Type: Spontaneous
  Country: GR (occurrence: GR)
  Receive Date: 20120910
  Receipt Date: 20130411
  Transmission Date: 20140414
  Serious: Yes (Disabling)
  Sender: FDA-Public Use
  Company Number: GR-AMGEN-GRCSP2012056328

PATIENT
  Age: 60 Year
  Sex: Female

DRUGS (1)
  1. PROLIA [Suspect]
     Indication: OSTEOPOROSIS
     Dosage: 60 MG, Q6MO
     Dates: start: 201206

REACTIONS (3)
  - Bedridden [Recovered/Resolved]
  - Pain [Recovered/Resolved]
  - Pain in extremity [Recovered/Resolved]
